FAERS Safety Report 12100071 (Version 1)
Quarter: 2016Q1

REPORT INFORMATION
  Report Type: Spontaneous
  Country: US (occurrence: None)
  Receive Date: 20160219
  Receipt Date: 20160219
  Transmission Date: 20160526
  Serious: Yes (Life-Threatening, Disabling, Other)
  Sender: FDA-Public Use
  Company Number: None

PATIENT
  Age: 29 Year
  Sex: Female
  Weight: 61.69 kg

DRUGS (1)
  1. OCELLA [Suspect]
     Active Substance: DROSPIRENONE\ETHINYL ESTRADIOL
     Indication: ACNE
     Route: 048
     Dates: start: 20150601, end: 20160210

REACTIONS (11)
  - Skin infection [None]
  - Tooth infection [None]
  - Tinnitus [None]
  - Photophobia [None]
  - Depression [None]
  - Visual field defect [None]
  - Kidney infection [None]
  - Reproductive tract disorder [None]
  - Migraine [None]
  - Eye pain [None]
  - Chest pain [None]
